FAERS Safety Report 13529540 (Version 1)
Quarter: 2017Q2

REPORT INFORMATION
  Report Type: Spontaneous
  Country: US (occurrence: US)
  Receive Date: 20170509
  Receipt Date: 20170509
  Transmission Date: 20170830
  Serious: No
  Sender: FDA-Public Use
  Company Number: US-ROCHE-GNE321576

PATIENT
  Age: 45 Year
  Sex: Male
  Weight: 60.97 kg

DRUGS (1)
  1. XOLAIR [Suspect]
     Active Substance: OMALIZUMAB
     Indication: ASTHMA
     Dosage: 300 MG, 1/MONTH
     Route: 058

REACTIONS (2)
  - Mucous stools [None]
  - Gingival swelling [Unknown]

NARRATIVE: CASE EVENT DATE: 201107
